FAERS Safety Report 8071342-6 (Version None)
Quarter: 2012Q1

REPORT INFORMATION
  Report Type: 
  Country: None (occurrence: None)
  Receive Date: 20120125
  Receipt Date: 20120117
  Transmission Date: 20120608
  Serious: Yes (Other)
  Sender: FDA-Public Use
  Company Number: US-ASTRAZENECA-2012SE02934

PATIENT
  Age: 53 Year
  Sex: Female
  Weight: 83.9 kg

DRUGS (3)
  1. NEXIUM [Suspect]
     Indication: OESOPHAGITIS
     Route: 048
     Dates: start: 20040101
  2. NEXIUM [Suspect]
     Indication: HIATUS HERNIA
     Route: 048
     Dates: start: 20040101
  3. NEXIUM [Suspect]
     Indication: INTESTINAL ULCER
     Route: 048
     Dates: start: 20040101

REACTIONS (7)
  - SUICIDAL IDEATION [None]
  - HAEMATEMESIS [None]
  - INCORRECT DRUG ADMINISTRATION DURATION [None]
  - DRUG PRESCRIBING ERROR [None]
  - DRUG DOSE OMISSION [None]
  - INAPPROPRIATE SCHEDULE OF DRUG ADMINISTRATION [None]
  - APHAGIA [None]
